FAERS Safety Report 15579703 (Version 1)
Quarter: 2018Q4

REPORT INFORMATION
  Report Type: Spontaneous
  Country: ES (occurrence: ES)
  Receive Date: 20181102
  Receipt Date: 20181102
  Transmission Date: 20190205
  Serious: Yes (Other)
  Sender: FDA-Public Use
  Company Number: ES-PFIZER INC-2018446468

PATIENT
  Age: 85 Year
  Sex: Male

DRUGS (5)
  1. TRIMETAZIDINE [Interacting]
     Active Substance: TRIMETAZIDINE
     Dosage: 20 MG, SINGLE
     Route: 048
     Dates: start: 20180917, end: 20180917
  2. OMEPRAZOLE. [Interacting]
     Active Substance: OMEPRAZOLE
     Dosage: 20 MG, SINGLE
     Route: 048
     Dates: start: 20180917, end: 20180917
  3. ATORVASTATIN CALCIUM. [Suspect]
     Active Substance: ATORVASTATIN CALCIUM
     Dosage: 20 MG, SINGLE
     Route: 048
     Dates: start: 20180917, end: 20180917
  4. DOXEPIN [Interacting]
     Active Substance: DOXEPIN
     Dosage: 25 MG, SINGLE
     Route: 048
     Dates: start: 20180917, end: 20180917
  5. ISOSORBIDE MONONITRATE. [Interacting]
     Active Substance: ISOSORBIDE MONONITRATE
     Dosage: 40 MG, SINGLE
     Route: 048
     Dates: start: 20180917, end: 20180917

REACTIONS (4)
  - Hypertension [Recovered/Resolved]
  - Wrong patient received product [Recovered/Resolved]
  - Tachycardia [Recovered/Resolved]
  - Drug interaction [Recovered/Resolved]

NARRATIVE: CASE EVENT DATE: 20180917
